FAERS Safety Report 8287272-0 (Version None)
Quarter: 2012Q2

REPORT INFORMATION
  Report Type: 
  Country: None (occurrence: None)
  Receive Date: 20120416
  Receipt Date: 20120416
  Transmission Date: 20120825
  Serious: Yes (Life-Threatening, Hospitalization)
  Sender: FDA-Public Use
  Company Number: None

PATIENT
  Age: 20 Year
  Sex: Female
  Weight: 122.46 kg

DRUGS (1)
  1. PROLIXIN [Suspect]
     Indication: BIPOLAR DISORDER
     Dates: start: 20090901, end: 20091030

REACTIONS (1)
  - NEUROLEPTIC MALIGNANT SYNDROME [None]
